FAERS Safety Report 15681798 (Version 1)
Quarter: 2018Q4

REPORT INFORMATION
  Report Type: Spontaneous
  Country: EG (occurrence: EG)
  Receive Date: 20181203
  Receipt Date: 20181203
  Transmission Date: 20190205
  Serious: Yes (Hospitalization)
  Sender: FDA-Public Use
  Company Number: EG-AKORN PHARMACEUTICALS-2018AKN01856

PATIENT
  Age: 16 Year
  Sex: Male

DRUGS (2)
  1. ISOTRETINOIN. [Suspect]
     Active Substance: ISOTRETINOIN
     Dosage: 80 MG (1.5 MG/KG), 1X/DAY
     Route: 048
  2. ISOTRETINOIN. [Suspect]
     Active Substance: ISOTRETINOIN
     Indication: ACNE
     Dosage: 30 MG (0.6 MG/KG), 1X/DAY
     Route: 048

REACTIONS (3)
  - Synovitis [Recovered/Resolved]
  - Acne fulminans [Recovered/Resolved]
  - Sacroiliitis [Recovered/Resolved]
